FAERS Safety Report 6259849-5 (Version None)
Quarter: 2009Q3

REPORT INFORMATION
  Report Type: 
  Country: None (occurrence: None)
  Receive Date: 20090706
  Receipt Date: 20090706
  Transmission Date: 20100115
  Serious: Yes (Hospitalization)
  Sender: FDA-Public Use
  Company Number: None

PATIENT
  Age: 73 Year
  Sex: Male
  Weight: 111.1313 kg

DRUGS (10)
  1. ATACAND [Suspect]
     Dosage: 4.0MG ONCE DAILY PO
     Route: 049
  2. ALLOPURINOL [Suspect]
     Dosage: 300.0MG ONCE DAILY PO
     Route: 048
  3. ALPRAZOLAM [Concomitant]
  4. PLAVIX [Concomitant]
  5. METOPROLOL TARTRATE [Concomitant]
  6. SIMVASTATIN [Concomitant]
  7. ASPIRIN [Concomitant]
  8. DIGOXIN [Concomitant]
  9. FERROUS SULFATE TAB [Concomitant]
  10. DOCUSATE [Concomitant]

REACTIONS (7)
  - ACTIVITIES OF DAILY LIVING IMPAIRED [None]
  - ACUTE MYOCARDIAL INFARCTION [None]
  - AORTIC STENOSIS [None]
  - AORTIC VALVE REPLACEMENT [None]
  - ARTHRALGIA [None]
  - MOBILITY DECREASED [None]
  - PROCEDURAL PAIN [None]
